FAERS Safety Report 9410005 (Version 1)
Quarter: 2013Q3

REPORT INFORMATION
  Report Type: Report from Study
  Country: NL (occurrence: NL)
  Receive Date: 20130719
  Receipt Date: 20130719
  Transmission Date: 20140515
  Serious: Yes (Life-Threatening, Hospitalization, Disabling)
  Sender: FDA-Public Use
  Company Number: NL-INCYTE CORPORATION-2013IN001545

PATIENT
  Age: 82 Year
  Sex: Male
  Weight: 65 kg

DRUGS (1)
  1. INC424 [Suspect]
     Indication: MYELOFIBROSIS
     Dosage: 20 MG, X 2 DAILY DOSING
     Route: 048
     Dates: start: 20130618, end: 20130702

REACTIONS (1)
  - Pulmonary embolism [Recovering/Resolving]
